FAERS Safety Report 4763659-5 (Version None)
Quarter: 2005Q3

REPORT INFORMATION
  Report Type: 
  Country: None (occurrence: None)
  Receive Date: 20050908
  Receipt Date: 20050822
  Transmission Date: 20060218
  Serious: Yes (Other)
  Sender: FDA-Public Use
  Company Number: PHNU2005DE02938

PATIENT
  Sex: Male

DRUGS (4)
  1. PROVAS COMP [Suspect]
     Route: 048
     Dates: start: 20010101
  2. ATORVASTATIN CALCIUM [Concomitant]
  3. METOPROLOL [Concomitant]
  4. ASPIRIN [Concomitant]

REACTIONS (3)
  - EYE DISORDER [None]
  - VISUAL DISTURBANCE [None]
  - VISUAL FIELD DEFECT [None]
